FAERS Safety Report 19951874 (Version 1)
Quarter: 2021Q4

REPORT INFORMATION
  Report Type: Spontaneous
  Country: GB (occurrence: GB)
  Receive Date: 20211014
  Receipt Date: 20211014
  Transmission Date: 20220303
  Serious: Yes (Life-Threatening, Hospitalization, Other)
  Sender: FDA-Public Use
  Company Number: GB-SCIEGENPHARMA-2020SCILIT00353

PATIENT
  Sex: Male

DRUGS (13)
  1. METFORMIN HYDROCHLORIDE [Suspect]
     Active Substance: METFORMIN HYDROCHLORIDE
     Indication: Product used for unknown indication
     Dosage: 50-60 G
     Route: 065
  2. LEVOTHYROXINE [Suspect]
     Active Substance: LEVOTHYROXINE
     Indication: Product used for unknown indication
     Route: 065
  3. AMLODIPINE [Concomitant]
     Active Substance: AMLODIPINE BESYLATE
     Indication: Product used for unknown indication
     Route: 065
  4. TELMISARTAN [Concomitant]
     Active Substance: TELMISARTAN
     Indication: Product used for unknown indication
  5. HYDROCHLOROTHIAZIDE [Concomitant]
     Active Substance: HYDROCHLOROTHIAZIDE
     Indication: Product used for unknown indication
     Route: 065
  6. SODIUM BICARBONATE [Interacting]
     Active Substance: SODIUM BICARBONATE
     Indication: Blood pressure measurement
     Route: 042
  7. NOREPINEPHRINE [Interacting]
     Active Substance: NOREPINEPHRINE
     Indication: Blood pressure measurement
     Dosage: 0.1 MICRO G/KG/MIN
     Route: 065
  8. VITAMIN K [Interacting]
     Active Substance: PHYTONADIONE
     Indication: Coagulopathy
     Route: 065
  9. VITAMIN K [Interacting]
     Active Substance: PHYTONADIONE
     Indication: Multiple organ dysfunction syndrome
  10. VITAMIN K [Interacting]
     Active Substance: PHYTONADIONE
     Indication: Hepatic function abnormal
  11. ACETYLCYSTEINE [Interacting]
     Active Substance: ACETYLCYSTEINE
     Indication: Coagulopathy
     Route: 065
  12. ACETYLCYSTEINE [Interacting]
     Active Substance: ACETYLCYSTEINE
     Indication: Hepatic function abnormal
  13. ACETYLCYSTEINE [Interacting]
     Active Substance: ACETYLCYSTEINE
     Indication: Multiple organ dysfunction syndrome

REACTIONS (15)
  - Agitation [Recovered/Resolved]
  - Abdominal pain [Recovered/Resolved]
  - Vomiting [Recovered/Resolved]
  - Overdose [Recovered/Resolved]
  - Acute kidney injury [Recovered/Resolved]
  - Metabolic acidosis [Recovered/Resolved]
  - Confusional state [Recovered/Resolved]
  - Coagulopathy [Recovered/Resolved]
  - Hepatic function abnormal [Recovered/Resolved]
  - Multiple organ dysfunction syndrome [Recovered/Resolved]
  - Pneumonia [Recovered/Resolved]
  - Lactic acidosis [Recovered/Resolved]
  - Hyperlactacidaemia [Recovered/Resolved]
  - Acidosis [Recovered/Resolved]
  - Renal impairment [Recovered/Resolved]
